FAERS Safety Report 9377119 (Version 1)
Quarter: 2013Q3

REPORT INFORMATION
  Report Type: Spontaneous
  Country: FR (occurrence: FR)
  Receive Date: 20130701
  Receipt Date: 20130701
  Transmission Date: 20140515
  Serious: Yes (Hospitalization)
  Sender: FDA-Public Use
  Company Number: FR-PFIZER INC-2013193053

PATIENT
  Age: 63 Year
  Sex: Male

DRUGS (7)
  1. CORDARONE [Suspect]
     Indication: ATRIAL FIBRILLATION
     Dosage: 200 MG, DAILY
     Route: 048
     Dates: start: 20121215, end: 20130107
  2. VANCOMYCINE [Suspect]
     Indication: INFECTION
     Dosage: 1 G, DAILY
     Route: 042
     Dates: start: 20121207, end: 20130101
  3. METRONIDAZOLE [Suspect]
     Indication: INFECTION
     Dosage: 500 MILLIGRAM, EVERY CYCLE
     Route: 042
     Dates: start: 20130106, end: 20130106
  4. COLCHIMAX (COLCHICINE\DICYCLOMINE HYDROCHLORIDE) [Suspect]
     Indication: ARTHRALGIA
     Dosage: 1 DF, DAILY
     Route: 048
     Dates: start: 201211, end: 20121227
  5. CUBICIN [Suspect]
     Indication: INFECTION
     Dosage: 4 MG/KG, UNK
     Route: 042
     Dates: start: 20130102, end: 20130104
  6. AZACTAM [Suspect]
     Indication: INFECTION
     Dosage: 500 MILLIGRAM, EVERY CYCLE
     Route: 042
     Dates: start: 20130106, end: 20130106
  7. GENTAMICIN [Concomitant]
     Dosage: UNK
     Dates: start: 20121207

REACTIONS (2)
  - Drug reaction with eosinophilia and systemic symptoms [Unknown]
  - Atrial fibrillation [Unknown]
